FAERS Safety Report 22068120 (Version 1)
Quarter: 2023Q1

REPORT INFORMATION
  Report Type: Spontaneous
  Country: SE (occurrence: SE)
  Receive Date: 20230307
  Receipt Date: 20230307
  Transmission Date: 20230417
  Serious: Yes (Hospitalization, Other)
  Sender: FDA-Public Use
  Company Number: SE-SA-2022SA117612

PATIENT
  Age: 75 Year
  Sex: Male
  Weight: 95.6 kg

DRUGS (23)
  1. PREDNISOLONE [Suspect]
     Active Substance: PREDNISOLONE
     Indication: Mantle cell lymphoma stage IV
     Dosage: 30 MILLIGRAM DAILY; 30 MG, QD, FIRST DOSE LATENCY 51 DAYS
     Dates: start: 20220129
  2. PREDNISONE [Suspect]
     Active Substance: PREDNISONE
     Indication: Mantle cell lymphoma stage IV
     Dosage: UNIT DOSE : 100 MG ,THERAPY START DATE AND END DATE : ASKU
     Route: 065
  3. EPCORITAMAB [Suspect]
     Active Substance: EPCORITAMAB
     Indication: Mantle cell lymphoma stage IV
     Dosage: 0.16 MG, QD , DURATION : 1 DAYS
     Dates: start: 20220314, end: 20220314
  4. EPCORITAMAB [Suspect]
     Active Substance: EPCORITAMAB
     Dosage: 0.8 MG, QD , DURATION : 1 DAYS
     Dates: start: 20220321, end: 20220321
  5. IMBRUVICA [Suspect]
     Active Substance: IBRUTINIB
     Indication: Product used for unknown indication
     Dosage: FIRST DOSE LATENCY 802 DAYS AND LAST DOSE LATENCY 664 DAYS
     Route: 065
     Dates: start: 20200109, end: 20200526
  6. PREDNISONE [Suspect]
     Active Substance: PREDNISONE
     Indication: Mantle cell lymphoma stage IV
     Dosage: UNIT DOSE : 100 MG, FIRST DOSE LATENCY 51 DAYS
     Route: 065
  7. PREDNISONE [Suspect]
     Active Substance: PREDNISONE
     Dosage: FIRST DOSE LATENCY 51 DAYS, UNIT DOSE : 30 MCG, THERAPY END DATE : NASK
     Route: 065
     Dates: start: 20220129
  8. VENETOCLAX [Suspect]
     Active Substance: VENETOCLAX
     Indication: Product used for unknown indication
     Route: 065
     Dates: start: 20200929, end: 20210607
  9. ATORVASTATIN [Concomitant]
     Active Substance: ATORVASTATIN
     Indication: Product used for unknown indication
     Dosage: UNK ,THERAPY END DATE : ASKU, FIRST DOSE LATENCY 4 YEARS
     Dates: start: 20171003
  10. ENALAPRIL [Concomitant]
     Active Substance: ENALAPRIL
     Indication: Product used for unknown indication
     Dosage: UNK ,THERAPY END DATE : ASKU, FIRST DOSE LATENCY 4 DAYS
     Dates: start: 20180503
  11. ELIQUIS [Concomitant]
     Active Substance: APIXABAN
     Indication: Product used for unknown indication
     Dosage: UNK , THERAPY END DATE : ASKU, FIRST DOSE LATENCY 35 DAYS
     Dates: start: 20220214
  12. PREDNISONE [Concomitant]
     Active Substance: PREDNISONE
     Indication: Product used for unknown indication
     Dosage: FORM STRENGTH : 100 MG ,DELTISON [PREDNISONE] ,THERAPY START DATE AND END DATE : ASKU, FIRST DOSE LA
     Route: 065
  13. PREDNISONE [Concomitant]
     Active Substance: PREDNISONE
     Dosage: FORM STRENGTH : 75 MG , DURATION : 11 DAYS
     Dates: start: 20220314, end: 20220324
  14. FLUCLOXACILLIN [Concomitant]
     Active Substance: FLUCLOXACILLIN
     Indication: Product used for unknown indication
     Dosage: UNK , DURATION : 11 DAYS
     Dates: start: 20220324, end: 20220403
  15. ACETAMINOPHEN [Concomitant]
     Active Substance: ACETAMINOPHEN
     Indication: Product used for unknown indication
     Dosage: UNIT DOSE 1000 MG , DURATION : 8 DAYS, FIRST DOSE LATENCY 7 DAYS
     Dates: start: 20220314, end: 20220321
  16. NYSTATIN [Concomitant]
     Active Substance: NYSTATIN
     Indication: Product used for unknown indication
     Dosage: UNK ,THERAPY END DATE : ASKU
     Dates: start: 20220328
  17. PANTOPRAZOLE SODIUM [Concomitant]
     Active Substance: PANTOPRAZOLE SODIUM
     Indication: Product used for unknown indication
     Dosage: UNK ,THERAPY END DATE : ASKU, FIRST DOSE LATENCY 47 DAYS
     Dates: start: 20220202
  18. SULFAMETHOXAZOLE\TRIMETHOPRIM [Concomitant]
     Active Substance: SULFAMETHOXAZOLE\TRIMETHOPRIM
     Indication: Product used for unknown indication
     Dosage: UNK ,THERAPY END DATE : ASKU, FIRST DOSE LATENCY 815 DAYS
     Dates: start: 20191227
  19. ALLOPURINOL [Concomitant]
     Active Substance: ALLOPURINOL
     Indication: Product used for unknown indication
     Dosage: UNK ,THERAPY END DATE : ASKU, FIRST DOSE LATENCY 34 DAYS
     Dates: start: 20220215
  20. DESLORATADINE [Concomitant]
     Active Substance: DESLORATADINE
     Indication: Product used for unknown indication
     Dosage: UNIT DOSE : 100 MG , DURATION : 8 DAYS
     Dates: start: 20220314, end: 20220321
  21. ZOPICLON PILUM [Concomitant]
     Indication: Product used for unknown indication
     Dosage: UNK ,ZOPIKLON PILUM ,THERAPY END DATE : ASKU
     Dates: start: 20211119
  22. LEVOTHYROXINE SODIUM [Concomitant]
     Active Substance: LEVOTHYROXINE SODIUM
     Indication: Product used for unknown indication
     Dosage: UNK , THERAPY END DATE : ASKU
     Dates: start: 20171003
  23. OXYCODONE HYDROCHLORIDE [Concomitant]
     Active Substance: OXYCODONE HYDROCHLORIDE
     Indication: Product used for unknown indication
     Dosage: UNK , THERAPY END DATE : ASKU, FIRST DOSE LATENCY 90 DAYS
     Dates: start: 20211221

REACTIONS (1)
  - Diabetes mellitus [Not Recovered/Not Resolved]

NARRATIVE: CASE EVENT DATE: 20220321
